FAERS Safety Report 10742276 (Version 1)
Quarter: 2015Q1

REPORT INFORMATION
  Report Type: Spontaneous
  Country: US (occurrence: None)
  Receive Date: 20150123
  Receipt Date: 20150123
  Transmission Date: 20150721
  Serious: Yes (Disabling)
  Sender: FDA-Public Use
  Company Number: None

PATIENT
  Age: 50 Year
  Sex: Female
  Weight: 127.01 kg

DRUGS (15)
  1. ATORVASTATIN 40MG WATSON [Concomitant]
     Active Substance: ATORVASTATIN
  2. PROAIR INHALER 8.5GM [Concomitant]
     Dosage: 8.5GM 2 PUFFS?
  3. RANITIDINE [Concomitant]
     Active Substance: RANITIDINE\RANITIDINE HYDROCHLORIDE
  4. TRIAMTERENE 37.5MG [Concomitant]
  5. OMEPRAZOLE 20MG [Concomitant]
     Active Substance: OMEPRAZOLE
  6. SEROQUEL [Concomitant]
     Active Substance: QUETIAPINE FUMARATE
  7. MEDIFORM 500MG [Concomitant]
  8. LEVOTHYROXINE 50MCG LANNETT [Concomitant]
     Active Substance: LEVOTHYROXINE
  9. ARTHRISTIS 650 [Concomitant]
  10. QVAR [Suspect]
     Active Substance: BECLOMETHASONE DIPROPIONATE
     Indication: CHRONIC OBSTRUCTIVE PULMONARY DISEASE
     Dosage: 2 PUFFS EVERY 12 HRS BY MOUTH
     Route: 048
     Dates: start: 201411, end: 20141125
  11. MULTIVITAMINS [Concomitant]
     Active Substance: VITAMINS
  12. QVAR [Suspect]
     Active Substance: BECLOMETHASONE DIPROPIONATE
     Indication: ASTHMA
     Dosage: 2 PUFFS EVERY 12 HRS BY MOUTH
     Route: 048
     Dates: start: 201411, end: 20141125
  13. LORAZEPAM 2MG/1ML [Concomitant]
     Active Substance: LORAZEPAM
  14. LISNIOPRIL 40MG [Concomitant]
  15. CARBAMAZEPINE. [Concomitant]
     Active Substance: CARBAMAZEPINE

REACTIONS (11)
  - Ear infection [None]
  - Gastrooesophageal reflux disease [None]
  - Pharyngeal oedema [None]
  - Sinusitis [None]
  - Laryngeal oedema [None]
  - Aphthous stomatitis [None]
  - Aphonia [None]
  - Throat tightness [None]
  - Pneumonia [None]
  - Nasal congestion [None]
  - Oral candidiasis [None]

NARRATIVE: CASE EVENT DATE: 20141210
